FAERS Safety Report 10866169 (Version 1)
Quarter: 2015Q1

REPORT INFORMATION
  Report Type: Spontaneous
  Country: US (occurrence: None)
  Receive Date: 20150219
  Receipt Date: 20150219
  Transmission Date: 20150721
  Serious: Yes (Other)
  Sender: FDA-Public Use
  Company Number: None

PATIENT
  Age: 64 Year
  Sex: Male

DRUGS (1)
  1. LEVEMIR [Suspect]
     Active Substance: INSULIN DETEMIR
     Indication: DIABETES MELLITUS
     Dosage: 5X3ML PENS TWICE A DAY SQ
     Route: 058
     Dates: start: 20141215, end: 20150213

REACTIONS (1)
  - Device failure [None]

NARRATIVE: CASE EVENT DATE: 20150213
